FAERS Safety Report 6619904-4 (Version None)
Quarter: 2010Q1

REPORT INFORMATION
  Report Type: 
  Country: None (occurrence: None)
  Receive Date: 20100304
  Receipt Date: 20100223
  Transmission Date: 20100710
  Serious: Yes (Other)
  Sender: FDA-Public Use
  Company Number: 2010AM001299

PATIENT
  Age: 54 Year
  Sex: Female
  Weight: 56.6996 kg

DRUGS (11)
  1. SYMLIN [Suspect]
     Indication: TYPE 1 DIABETES MELLITUS
     Dosage: 120 MCG; TID; SC
     Route: 058
     Dates: start: 20080101
  2. SYMLIN [Suspect]
     Indication: TYPE 1 DIABETES MELLITUS
     Dosage: 60 MCG; ; SC, 45 MCG; ; SC, 30 MCG; ; SC, 15 MCG; ; SC
     Route: 058
     Dates: start: 20080101, end: 20080101
  3. SYMLIN [Suspect]
     Indication: TYPE 1 DIABETES MELLITUS
     Dosage: 60 MCG; ; SC, 45 MCG; ; SC, 30 MCG; ; SC, 15 MCG; ; SC
     Route: 058
     Dates: start: 20080101, end: 20080101
  4. SYMLIN [Suspect]
     Indication: TYPE 1 DIABETES MELLITUS
     Dosage: 60 MCG; ; SC, 45 MCG; ; SC, 30 MCG; ; SC, 15 MCG; ; SC
     Route: 058
     Dates: start: 20080101, end: 20080101
  5. SYMLIN [Suspect]
     Indication: TYPE 1 DIABETES MELLITUS
     Dosage: 60 MCG; ; SC, 45 MCG; ; SC, 30 MCG; ; SC, 15 MCG; ; SC
     Route: 058
     Dates: start: 20080101, end: 20080101
  6. SYMLINPEN (PRAMLINTIDE ACETATE) PEN-INJECTOR (0.6 MG/ML) [Suspect]
     Indication: TYPE 1 DIABETES MELLITUS
     Dosage: ; SC
     Route: 058
     Dates: start: 20050101, end: 20080101
  7. HUMALOG [Concomitant]
  8. PLAVIX [Concomitant]
  9. NEURONTIN [Concomitant]
  10. TOPAMAX [Concomitant]
  11. ZEMPLAR [Concomitant]

REACTIONS (12)
  - ABDOMINAL DISTENSION [None]
  - ABDOMINAL PAIN UPPER [None]
  - BLOOD GLUCOSE DECREASED [None]
  - BLOOD GLUCOSE INCREASED [None]
  - DECREASED APPETITE [None]
  - DIABETES MELLITUS INADEQUATE CONTROL [None]
  - DIALYSIS [None]
  - DRUG INEFFECTIVE [None]
  - HYPOPHAGIA [None]
  - NAUSEA [None]
  - RENAL FAILURE [None]
  - WEIGHT DECREASED [None]
